FAERS Safety Report 4873744-5 (Version None)
Quarter: 2006Q1

REPORT INFORMATION
  Report Type: 
  Country: None (occurrence: None)
  Receive Date: 20060104
  Receipt Date: 20051220
  Transmission Date: 20060701
  Serious: Yes (Death, Hospitalization)
  Sender: FDA-Public Use
  Company Number: US-2005-007919

PATIENT
  Age: 65 Year
  Sex: Female

DRUGS (3)
  1. BETASERON [Suspect]
     Indication: SECONDARY PROGRESSIVE MULTIPLE SCLEROSIS
     Dosage: 8 MIU EVERY 2D SUBCUTANEOUS
     Route: 058
     Dates: start: 19961231, end: 20050512
  2. DITROPAN [Concomitant]
  3. AMITRIPTYLINE (AMITRIPTYLINE) [Concomitant]

REACTIONS (13)
  - AGITATION [None]
  - ASTHENIA [None]
  - ATELECTASIS [None]
  - BLOOD ALBUMIN DECREASED [None]
  - CEREBROVASCULAR ACCIDENT [None]
  - DISEASE PROGRESSION [None]
  - HAEMATOCRIT DECREASED [None]
  - HAEMOGLOBIN DECREASED [None]
  - LOSS OF CONSCIOUSNESS [None]
  - MULTIPLE SCLEROSIS [None]
  - NERVOUS SYSTEM DISORDER [None]
  - RESTLESSNESS [None]
  - URINARY TRACT INFECTION [None]
